FAERS Safety Report 4295778-4 (Version None)
Quarter: 2004Q1

REPORT INFORMATION
  Report Type: 
  Country: None (occurrence: None)
  Receive Date: 20040216
  Receipt Date: 20031023
  Transmission Date: 20041129
  Serious: Yes (Life-Threatening, Hospitalization, Other)
  Sender: FDA-Public Use
  Company Number: US-GLAXOSMITHKLINE-A0432455A

PATIENT
  Age: 61 Year
  Sex: Female

DRUGS (6)
  1. LAMICTAL [Suspect]
     Dosage: 150MG PER DAY
     Route: 048
     Dates: start: 20030613, end: 20031021
  2. SERZONE [Concomitant]
     Dosage: 600MG PER DAY
  3. PREMARIN [Concomitant]
     Dosage: .125MG PER DAY
  4. ZOCOR [Concomitant]
     Dosage: 20MG PER DAY
  5. VERAPAMIL [Concomitant]
     Dosage: 180MG PER DAY
  6. ADVAIR DISKUS 100/50 [Concomitant]

REACTIONS (1)
  - RASH [None]
